FAERS Safety Report 12009167 (Version 1)
Quarter: 2016Q1

REPORT INFORMATION
  Report Type: Spontaneous
  Country: US (occurrence: None)
  Receive Date: 20160203
  Receipt Date: 20160203
  Transmission Date: 20160526
  Serious: Yes (Hospitalization)
  Sender: FDA-Public Use
  Company Number: None

PATIENT
  Age: 40 Year
  Sex: Female
  Weight: 54.89 kg

DRUGS (17)
  1. MELATONIN [Concomitant]
     Active Substance: MELATONIN
  2. SUMATRIPTAN. [Concomitant]
     Active Substance: SUMATRIPTAN
  3. ZONISAMIDE. [Concomitant]
     Active Substance: ZONISAMIDE
  4. PROFMETHAZINE [Concomitant]
  5. ZOFRAN ODT [Concomitant]
     Active Substance: ONDANSETRON HYDROCHLORIDE
  6. VALTREX [Concomitant]
     Active Substance: VALACYCLOVIR HYDROCHLORIDE
  7. AMBIEN [Concomitant]
     Active Substance: ZOLPIDEM TARTRATE
  8. SOLU-MEDROL [Suspect]
     Active Substance: METHYLPREDNISOLONE SODIUM SUCCINATE
     Route: 042
     Dates: start: 20141209, end: 20141211
  9. HYDROZYZINE HCL [Concomitant]
  10. PROVIGIL [Concomitant]
     Active Substance: MODAFINIL
  11. BUSPAR [Concomitant]
     Active Substance: BUSPIRONE HYDROCHLORIDE
  12. ALEMTUZUMAB [Suspect]
     Active Substance: ALEMTUZUMAB
     Indication: MULTIPLE SCLEROSIS
     Route: 042
     Dates: start: 20141209, end: 20141211
  13. MAGNESIUM [Concomitant]
     Active Substance: MAGNESIUM
  14. SINGULAIR [Concomitant]
     Active Substance: MONTELUKAST SODIUM
  15. GABAPENTIN. [Concomitant]
     Active Substance: GABAPENTIN
  16. VENLAFAXINE ER [Concomitant]
     Active Substance: VENLAFAXINE HYDROCHLORIDE
  17. EMLA [Concomitant]
     Active Substance: LIDOCAINE\PRILOCAINE

REACTIONS (4)
  - Wheezing [None]
  - Diarrhoea [None]
  - Eating disorder [None]
  - Vomiting [None]

NARRATIVE: CASE EVENT DATE: 20151202
